FAERS Safety Report 20179368 (Version 1)
Quarter: 2021Q4

REPORT INFORMATION
  Report Type: Spontaneous
  Country: US (occurrence: US)
  Receive Date: 20211214
  Receipt Date: 20211214
  Transmission Date: 20220303
  Serious: Yes (Hospitalization, Other)
  Sender: FDA-Public Use
  Company Number: US-LUPIN PHARMACEUTICALS INC.-2021-24663

PATIENT
  Age: 35 Year
  Sex: Male

DRUGS (1)
  1. CALCIUM [Suspect]
     Active Substance: CALCIUM
     Indication: Abdominal pain
     Dosage: UNK
     Route: 065

REACTIONS (2)
  - Milk-alkali syndrome [Recovered/Resolved]
  - Acute kidney injury [Recovered/Resolved]
